FAERS Safety Report 14010244 (Version 2)
Quarter: 2017Q4

REPORT INFORMATION
  Report Type: Spontaneous
  Country: AU (occurrence: AU)
  Receive Date: 20170926
  Receipt Date: 20171005
  Transmission Date: 20180321
  Serious: Yes (Other)
  Sender: FDA-Public Use
  Company Number: AU-AMGEN-AUSSP2017142975

PATIENT
  Age: 70 Year
  Sex: Female

DRUGS (1)
  1. PROLIA [Suspect]
     Active Substance: DENOSUMAB
     Indication: OSTEOPOROSIS
     Dosage: 60 MG, UNK
     Route: 065
     Dates: start: 20170418

REACTIONS (14)
  - Impaired healing [Unknown]
  - Dizziness [Unknown]
  - Rash generalised [Not Recovered/Not Resolved]
  - Immunodeficiency [Unknown]
  - Haemangioma [Unknown]
  - Pyrexia [Unknown]
  - Blood immunoglobulin E increased [Unknown]
  - Wound [Unknown]
  - Drug hypersensitivity [Unknown]
  - Feeling abnormal [Unknown]
  - Erythema [Unknown]
  - Skin sensitisation [Unknown]
  - Influenza like illness [Unknown]
  - Pruritus [Unknown]

NARRATIVE: CASE EVENT DATE: 2017
